FAERS Safety Report 6995100-6 (Version None)
Quarter: 2010Q3

REPORT INFORMATION
  Report Type: 
  Country: None (occurrence: None)
  Receive Date: 20100915
  Receipt Date: 20100902
  Transmission Date: 20110219
  Serious: No
  Sender: FDA-Public Use
  Company Number: 8051126

PATIENT
  Sex: Female
  Weight: 65.9 kg

DRUGS (3)
  1. KEPPRA [Suspect]
     Indication: CONVULSION
     Dosage: (7500 MG   DAILY ORAL)
     Route: 048
     Dates: start: 20090101
  2. KEPPRA [Suspect]
     Dosage: (500 MG  BID),  (750 MG: 1/2 TAB TWICE A DAY)
     Dates: start: 20090901
  3. ARICEPT [Concomitant]

REACTIONS (5)
  - DEMENTIA ALZHEIMER'S TYPE [None]
  - DISEASE PROGRESSION [None]
  - LETHARGY [None]
  - SOMNOLENCE [None]
  - WRONG TECHNIQUE IN DRUG USAGE PROCESS [None]
